FAERS Safety Report 8389337-1 (Version None)
Quarter: 2012Q2

REPORT INFORMATION
  Report Type: 
  Country: None (occurrence: None)
  Receive Date: 20120528
  Receipt Date: 20120521
  Transmission Date: 20120825
  Serious: No
  Sender: FDA-Public Use
  Company Number: US-BAYER-2012-051389

PATIENT

DRUGS (2)
  1. NAPROXEN SODIUM [Suspect]
     Indication: DYSMENORRHOEA
     Route: 048
  2. ACETAMINOPHEN [Concomitant]
     Indication: DYSMENORRHOEA
     Dosage: 800 MG, UNK

REACTIONS (1)
  - DYSMENORRHOEA [None]
